FAERS Safety Report 15574378 (Version 1)
Quarter: 2018Q4

REPORT INFORMATION
  Report Type: Spontaneous
  Country: TR (occurrence: TR)
  Receive Date: 20181101
  Receipt Date: 20181101
  Transmission Date: 20190205
  Serious: Yes (Death, Other)
  Sender: FDA-Public Use
  Company Number: PHHY2018TR140275

PATIENT
  Age: 40 Year
  Sex: Male

DRUGS (3)
  1. EVEROLIMUS. [Suspect]
     Active Substance: EVEROLIMUS
     Dosage: 10 MG, QD
     Route: 065
     Dates: start: 201212
  2. SUNITINIB MALATE. [Suspect]
     Active Substance: SUNITINIB MALATE
     Indication: RENAL CELL CARCINOMA
     Dosage: 50 MG, QD (4/6 WEEKS)
     Route: 065
     Dates: start: 201204, end: 201212
  3. EVEROLIMUS. [Suspect]
     Active Substance: EVEROLIMUS
     Indication: RENAL CELL CARCINOMA
     Dosage: UNK
     Route: 065
     Dates: start: 201102, end: 201112

REACTIONS (11)
  - Metastases to abdominal cavity [Unknown]
  - Flank pain [Unknown]
  - Malignant neoplasm progression [Fatal]
  - Weight decreased [Unknown]
  - Pyrexia [Unknown]
  - Renal cell carcinoma [Fatal]
  - Metastases to muscle [Unknown]
  - Metastases to lymph nodes [Unknown]
  - Hepatomegaly [Unknown]
  - Palmar-plantar erythrodysaesthesia syndrome [Recovering/Resolving]
  - Abdominal pain upper [Unknown]

NARRATIVE: CASE EVENT DATE: 201102
